FAERS Safety Report 24904025 (Version 1)
Quarter: 2025Q1

REPORT INFORMATION
  Report Type: Spontaneous
  Country: DE (occurrence: DE)
  Receive Date: 20250130
  Receipt Date: 20250130
  Transmission Date: 20250409
  Serious: Yes (Other)
  Sender: BAUSCH AND LOMB
  Company Number: DE-BRISTOL-MYERS SQUIBB COMPANY-2024-196791

PATIENT
  Age: 77 Year
  Sex: Male
  Weight: 65 kg

DRUGS (4)
  1. DEXAMETHASONE [Suspect]
     Active Substance: DEXAMETHASONE
     Indication: Plasma cell myeloma
     Route: 065
     Dates: start: 20240717, end: 20240717
  2. POMALIDOMIDE [Suspect]
     Active Substance: POMALIDOMIDE
     Indication: Plasma cell myeloma
     Route: 065
     Dates: start: 20240717, end: 20240729
  3. POMALIDOMIDE [Suspect]
     Active Substance: POMALIDOMIDE
     Route: 065
     Dates: end: 20240801
  4. ISATUXIMAB [Suspect]
     Active Substance: ISATUXIMAB
     Indication: Plasma cell myeloma
     Route: 065
     Dates: start: 20240717, end: 20240717

REACTIONS (2)
  - Neutropenia [Recovered/Resolved]
  - Thrombocytopenia [Not Recovered/Not Resolved]

NARRATIVE: CASE EVENT DATE: 20240730
